FAERS Safety Report 7633662-6 (Version None)
Quarter: 2011Q3

REPORT INFORMATION
  Report Type: 
  Country: None (occurrence: None)
  Receive Date: 20110725
  Receipt Date: 20110705
  Transmission Date: 20111222
  Serious: Yes (Hospitalization)
  Sender: FDA-Public Use
  Company Number: US-GLAXOSMITHKLINE-B0696957A

PATIENT
  Age: 59 Year
  Sex: Male
  Weight: 96.4 kg

DRUGS (8)
  1. REQUIP [Concomitant]
  2. AVANDIA [Suspect]
     Indication: DIABETES MELLITUS
     Dosage: 4MG PER DAY
     Route: 048
     Dates: start: 20040818, end: 20060704
  3. MONOPRIL [Concomitant]
  4. CARDURA [Concomitant]
  5. LIPITOR [Concomitant]
  6. VYTORIN [Concomitant]
  7. CIALIS [Concomitant]
  8. HYDROCHLOROTHIAZIDE [Concomitant]

REACTIONS (3)
  - CORONARY ARTERY DISEASE [None]
  - MYOCARDIAL INFARCTION [None]
  - ACUTE CORONARY SYNDROME [None]
